FAERS Safety Report 9051267 (Version 2)
Quarter: 2013Q1

REPORT INFORMATION
  Report Type: Report from Study
  Country: JP (occurrence: JP)
  Receive Date: 20130206
  Receipt Date: 20130219
  Transmission Date: 20140127
  Serious: Yes (Hospitalization)
  Sender: FDA-Public Use
  Company Number: JP-UCBSA-077184

PATIENT
  Age: 68 Year
  Sex: Male
  Weight: 53.2 kg

DRUGS (10)
  1. CERTOLIZUMAB PEGOL [Suspect]
     Indication: RHEUMATOID ARTHRITIS
     Route: 058
     Dates: start: 20100624, end: 20120816
  2. CERTOLIZUMAB PEGOL [Suspect]
     Indication: RHEUMATOID ARTHRITIS
     Dosage: PREVIOUS STUDY: RA0006, 400 MG ONCE EVERY 2 WEEKS AND THEN 200 MG ONCE EVERY 2 WEEKS
     Route: 058
     Dates: start: 20091209
  3. RHEUMATREX [Concomitant]
     Indication: RHEUMATOID ARTHRITIS
     Route: 048
  4. LANSOPRAZOLE [Concomitant]
     Indication: PROPHYLAXIS AGAINST GASTROINTESTINAL ULCER
     Route: 048
  5. PREDNISOLONE [Concomitant]
     Indication: RHEUMATOID ARTHRITIS
     Route: 048
  6. MOBIC [Concomitant]
     Indication: RHEUMATOID ARTHRITIS
     Route: 048
  7. ENALAPRIL MALEATE [Concomitant]
     Route: 048
  8. TENORMIN [Concomitant]
     Route: 048
  9. SODIUM RISEDRONATE HYDRATE [Concomitant]
     Indication: OSTEOPOROSIS PROPHYLAXIS
     Route: 048
  10. EPERISONE HYDROCHLORIDE [Concomitant]
     Route: 048

REACTIONS (2)
  - Dehydration [Recovered/Resolved]
  - Urinary tract infection [Recovered/Resolved]
